FAERS Safety Report 13434607 (Version 1)
Quarter: 2017Q2

REPORT INFORMATION
  Report Type: Spontaneous
  Country: US (occurrence: US)
  Receive Date: 20170413
  Receipt Date: 20170413
  Transmission Date: 20170830
  Serious: No
  Sender: FDA-Public Use
  Company Number: US-PFIZER INC-2017151795

PATIENT
  Sex: Female

DRUGS (1)
  1. TIKOSYN [Suspect]
     Active Substance: DOFETILIDE
     Dosage: UNKNOWN DOSE
     Dates: start: 20170325

REACTIONS (2)
  - Respiratory symptom [Unknown]
  - Influenza [Unknown]

NARRATIVE: CASE EVENT DATE: 2017
